FAERS Safety Report 7682654 (Version 4)
Quarter: 2013Q1

REPORT INFORMATION
  Report Type: Report from Study
  Country: US (occurrence: US)
  Receive Date: 20101124
  Receipt Date: 20130320
  Transmission Date: 20140127
  Serious: Yes (Death, Hospitalization)
  Sender: FDA-Public Use
  Company Number: US-ALEXION-A201001506

PATIENT
  Sex: Male

DRUGS (1)
  1. SOLIRIS [Suspect]
     Indication: PAROXYSMAL NOCTURNAL HAEMOGLOBINURIA
     Dosage: UNK
     Route: 042
     Dates: start: 20101008, end: 20101119

REACTIONS (7)
  - Sepsis [Fatal]
  - Lung infiltration [Unknown]
  - Cardiovascular disorder [Unknown]
  - Weight decreased [Unknown]
  - Dehydration [Unknown]
  - Platelet count decreased [Unknown]
  - White blood cell count increased [Unknown]
